FAERS Safety Report 23961385 (Version 5)
Quarter: 2024Q3

REPORT INFORMATION
  Report Type: Spontaneous
  Country: TR (occurrence: TR)
  Receive Date: 20240611
  Receipt Date: 20240925
  Transmission Date: 20241017
  Serious: Yes (Other)
  Sender: ASTELLAS
  Company Number: TR-ASTELLAS-2024US016341

PATIENT
  Age: 71 Year
  Sex: Male

DRUGS (1)
  1. XTANDI [Suspect]
     Active Substance: ENZALUTAMIDE
     Indication: Hormone-dependent prostate cancer
     Dosage: UNK UNK, UNKNOWN FREQ.
     Route: 048
     Dates: start: 202010

REACTIONS (2)
  - Malignant neoplasm progression [Recovered/Resolved]
  - Hepatic steatosis [Recovered/Resolved]
